FAERS Safety Report 9308993 (Version 5)
Quarter: 2014Q2

REPORT INFORMATION
  Report Type: Report from Study
  Country: US (occurrence: US)
  Receive Date: 20130524
  Receipt Date: 20140630
  Transmission Date: 20141212
  Serious: Yes (Hospitalization, Other)
  Sender: FDA-Public Use
  Company Number: US-ALEXION PHARMACEUTICALS INC.-A201301183

PATIENT
  Sex: 0

DRUGS (5)
  1. SOLIRIS [Suspect]
     Indication: HAEMOLYTIC URAEMIC SYNDROME
     Dosage: 600 MG, Q2W
     Route: 042
     Dates: start: 20130410
  2. ZOLOFT [Concomitant]
     Indication: DEPRESSION
     Route: 065
  3. ZOLOFT [Concomitant]
     Indication: ANXIETY
  4. TRAZODONE HCL [Concomitant]
     Indication: DEPRESSION
     Route: 065
  5. TRAZODONE HCL [Concomitant]
     Indication: ANXIETY

REACTIONS (7)
  - Unevaluable event [Unknown]
  - Haemodialysis [Recovered/Resolved]
  - Oedema [Unknown]
  - Abdominal pain [Unknown]
  - Nausea [Unknown]
  - Vomiting [Unknown]
  - Fatigue [Unknown]
